FAERS Safety Report 7029179-2 (Version None)
Quarter: 2010Q4

REPORT INFORMATION
  Report Type: 
  Country: None (occurrence: None)
  Receive Date: 20101005
  Receipt Date: 20100923
  Transmission Date: 20110411
  Serious: Yes (Life-Threatening, Hospitalization, Other)
  Sender: FDA-Public Use
  Company Number: FR-GILEAD-2010-0031976

PATIENT
  Sex: Female
  Weight: 65 kg

DRUGS (10)
  1. VIREAD [Suspect]
     Indication: HIV INFECTION
     Dates: start: 20100803, end: 20100920
  2. EPIVIR [Suspect]
     Indication: HIV INFECTION
     Route: 048
     Dates: start: 20100803, end: 20100920
  3. RALTEGRAVIR [Suspect]
     Indication: HIV INFECTION
     Route: 048
     Dates: start: 20100803, end: 20100920
  4. ASPIRIN [Concomitant]
     Indication: PROPHYLAXIS
     Dates: start: 20100101, end: 20100920
  5. ATORVASTATIN [Concomitant]
     Indication: PROPHYLAXIS
     Dates: start: 20100101, end: 20100920
  6. LANSOPRAZOLE [Concomitant]
     Indication: PROPHYLAXIS
     Dates: start: 20100101, end: 20100920
  7. CHONDROITIN SULFATE [Concomitant]
     Indication: OSTEOARTHRITIS
     Dates: start: 20100101, end: 20100920
  8. TRAMADOL HCL [Concomitant]
     Indication: HEADACHE
     Dates: start: 20100101, end: 20100920
  9. RIFAMPICIN [Concomitant]
     Indication: TUBERCULOSIS
     Dates: start: 20100628, end: 20100920
  10. ISONIAZID [Concomitant]
     Indication: TUBERCULOSIS
     Dates: start: 20100628, end: 20100920

REACTIONS (2)
  - HEPATIC NECROSIS [None]
  - HEPATITIS FULMINANT [None]
